FAERS Safety Report 20737243 (Version 3)
Quarter: 2023Q2

REPORT INFORMATION
  Report Type: Report from Study
  Country: US (occurrence: US)
  Receive Date: 20220421
  Receipt Date: 20230630
  Transmission Date: 20230722
  Serious: Yes (Hospitalization, Other)
  Sender: FDA-Public Use
  Company Number: US-GW PHARMA-2022-US-011871

PATIENT
  Age: 6 Year
  Sex: Female
  Weight: 10.8 kg

DRUGS (3)
  1. EPIDIOLEX [Suspect]
     Active Substance: CANNABIDIOL
     Indication: Seizure
     Dosage: 1.5 MILLILITER, BID (ADDITIONAL 1.5 AS NEEDED)
     Route: 048
     Dates: start: 201901
  2. EPIDIOLEX [Suspect]
     Active Substance: CANNABIDIOL
     Dosage: 2 MILLIGRAM
     Route: 048
  3. EPIDIOLEX [Suspect]
     Active Substance: CANNABIDIOL
     Dosage: 2.2 MILLILITER, BID. (THEN 1.5 ML AS NEEDED)
     Route: 048

REACTIONS (2)
  - Hospitalisation [Unknown]
  - Seizure [Unknown]

NARRATIVE: CASE EVENT DATE: 20220404
